FAERS Safety Report 7553578-3 (Version None)
Quarter: 2011Q2

REPORT INFORMATION
  Report Type: 
  Country: None (occurrence: None)
  Receive Date: 20110617
  Receipt Date: 20101004
  Transmission Date: 20111010
  Serious: No
  Sender: FDA-Public Use
  Company Number: US-MYLANLABS-2010S1018152

PATIENT
  Age: 28 Year
  Sex: Male

DRUGS (4)
  1. LAMOTRIGINE [Suspect]
     Indication: CONVULSION
     Route: 048
     Dates: start: 20090101
  2. SUBOXONE [Concomitant]
     Dates: start: 20100901
  3. GLIPIZIDE [Suspect]
     Indication: DIABETES MELLITUS
     Route: 048
     Dates: start: 20080101
  4. METFORMIN HCL [Suspect]
     Indication: DIABETES MELLITUS
     Route: 048
     Dates: start: 20070101

REACTIONS (1)
  - DRUG SCREEN FALSE POSITIVE [None]
